FAERS Safety Report 8321865-7 (Version None)
Quarter: 2012Q2

REPORT INFORMATION
  Report Type: 
  Country: None (occurrence: None)
  Receive Date: 20120430
  Receipt Date: 20120417
  Transmission Date: 20120825
  Serious: Yes (Other)
  Sender: FDA-Public Use
  Company Number: FR-VIIV HEALTHCARE LIMITED-B0796738A

PATIENT
  Sex: Female

DRUGS (3)
  1. ISENTRESS [Concomitant]
     Indication: HIV INFECTION
     Route: 065
  2. ABACAVIR SULFATE/LAMIVUDINE [Suspect]
     Indication: HIV INFECTION
     Route: 048
  3. TRUVADA [Concomitant]
     Indication: HIV INFECTION
     Route: 065

REACTIONS (3)
  - FATIGUE [None]
  - JAUNDICE [None]
  - HEPATITIS [None]
